FAERS Safety Report 19587270 (Version 1)
Quarter: 2021Q3

REPORT INFORMATION
  Report Type: Report from Study
  Country: CO (occurrence: CO)
  Receive Date: 20210721
  Receipt Date: 20210721
  Transmission Date: 20211014
  Serious: Yes (Other)
  Sender: FDA-Public Use
  Company Number: CO-SA-2021SA159713

PATIENT
  Age: 24 Year
  Sex: Male

DRUGS (2)
  1. DUPILUMAB [Suspect]
     Active Substance: DUPILUMAB
     Indication: DERMATITIS ATOPIC
     Dosage: 300 MG, QOW
     Route: 058
     Dates: start: 20190529
  2. LORATADINE. [Concomitant]
     Active Substance: LORATADINE
     Indication: RHINITIS
     Dosage: UNK, PRN

REACTIONS (11)
  - Oropharyngeal pain [Not Recovered/Not Resolved]
  - Headache [Recovering/Resolving]
  - Pyrexia [Recovering/Resolving]
  - Myalgia [Recovered/Resolved]
  - Chest discomfort [Not Recovered/Not Resolved]
  - Unevaluable event [Unknown]
  - Suspected COVID-19 [Recovered/Resolved]
  - Choking sensation [Recovering/Resolving]
  - Drowning [Recovering/Resolving]
  - Asphyxia [Recovering/Resolving]
  - Asthenia [Recovering/Resolving]

NARRATIVE: CASE EVENT DATE: 202105
